FAERS Safety Report 13648414 (Version 1)
Quarter: 2017Q2

REPORT INFORMATION
  Report Type: Spontaneous
  Country: US (occurrence: US)
  Receive Date: 20170613
  Receipt Date: 20170613
  Transmission Date: 20170830
  Serious: No
  Sender: FDA-Public Use
  Company Number: US-ADAPT PHARMA INC-2017ADP00005

PATIENT
  Sex: Female

DRUGS (3)
  1. UNKNOWN ^LONGER-TERM CHRONIC^ OPIOID MEDICATION [Concomitant]
     Indication: PAIN
     Dosage: UNK
  2. UNKNOWN NASAL DECONGESTANT [Concomitant]
  3. NARCAN [Suspect]
     Active Substance: NALOXONE HYDROCHLORIDE
     Indication: OVERDOSE
     Dosage: UNK, UNK
     Route: 045
     Dates: start: 20170224, end: 20170224

REACTIONS (1)
  - Unintentional use for unapproved indication [Recovered/Resolved]

NARRATIVE: CASE EVENT DATE: 20170224
